FAERS Safety Report 8048164-5 (Version None)
Quarter: 2012Q1

REPORT INFORMATION
  Report Type: 
  Country: None (occurrence: None)
  Receive Date: 20120117
  Receipt Date: 20120109
  Transmission Date: 20120608
  Serious: Yes (Hospitalization)
  Sender: FDA-Public Use
  Company Number: US-BAYER-2010-002156

PATIENT
  Age: 44 Year
  Sex: Female
  Weight: 70 kg

DRUGS (6)
  1. ZOLOFT [Concomitant]
     Dosage: 25 MG, UNK
  2. MOTRIN [Concomitant]
     Indication: ABDOMINAL PAIN UPPER
     Dosage: UNK UNK, PRN
  3. YAZ [Suspect]
     Dosage: UNK
     Dates: start: 20030101, end: 20080101
  4. KARIVA [Concomitant]
  5. YASMIN [Suspect]
     Dosage: UNK
     Dates: start: 20030101, end: 20080101
  6. IBUPROFEN (ADVIL) [Concomitant]
     Indication: ABDOMINAL PAIN UPPER
     Dosage: UNK UNK, PRN

REACTIONS (1)
  - DEEP VEIN THROMBOSIS [None]
